FAERS Safety Report 6989920-1 (Version None)
Quarter: 2010Q3

REPORT INFORMATION
  Report Type: 
  Country: None (occurrence: None)
  Receive Date: 20100916
  Receipt Date: 20100308
  Transmission Date: 20110219
  Serious: Yes (Other)
  Sender: FDA-Public Use
  Company Number: US-PFIZER INC-2010030734

PATIENT
  Sex: Male
  Weight: 77.098 kg

DRUGS (12)
  1. LYRICA [Suspect]
     Indication: BACK PAIN
     Dosage: 50 MG, 2X/DAY
     Route: 048
     Dates: start: 20060101
  2. LYRICA [Suspect]
     Indication: PAIN IN EXTREMITY
  3. LYRICA [Suspect]
     Indication: NEUROPATHY PERIPHERAL
  4. VYTORIN [Concomitant]
     Indication: BLOOD CHOLESTEROL INCREASED
     Dosage: 10/40MG DAILY
  5. VYTORIN [Concomitant]
     Indication: BLOOD TRIGLYCERIDES INCREASED
  6. COREG [Concomitant]
     Indication: HEART RATE
     Dosage: 40 MG, 1X/DAY
  7. ETODOLAC [Concomitant]
     Indication: RHEUMATOID ARTHRITIS
     Dosage: 500 MG, 2X/DAY
  8. CENTRUM SILVER [Concomitant]
     Dosage: UNK
     Route: 048
  9. CALCIUM [Concomitant]
     Dosage: 600 MG, 2X/DAY
  10. ASCORBIC ACID [Concomitant]
     Dosage: 500 MG, 1X/DAY
  11. VITAMIN E [Concomitant]
     Dosage: 400 IU, 1X/DAY
  12. ACETYLSALICYLIC ACID [Concomitant]
     Indication: CARDIAC DISORDER
     Dosage: 81 MG, 1X/DAY
     Route: 048

REACTIONS (4)
  - ASTHMA [None]
  - BALANCE DISORDER [None]
  - JOINT SWELLING [None]
  - OEDEMA PERIPHERAL [None]
